FAERS Safety Report 24309964 (Version 2)
Quarter: 2024Q3

REPORT INFORMATION
  Report Type: Spontaneous
  Country: US (occurrence: US)
  Receive Date: 20240912
  Receipt Date: 20240924
  Transmission Date: 20241016
  Serious: No
  Sender: HETERO
  Company Number: US-HETERO-HET2024US02959

PATIENT
  Age: 14 Year
  Sex: Male
  Weight: 56.6 kg

DRUGS (1)
  1. IVABRADINE [Suspect]
     Active Substance: IVABRADINE
     Indication: Postural orthostatic tachycardia syndrome
     Dosage: UNK, TWICE DAILY
     Route: 065
     Dates: start: 20240801, end: 20240808

REACTIONS (3)
  - Abdominal discomfort [Recovered/Resolved]
  - Gastrooesophageal reflux disease [Recovered/Resolved]
  - Nausea [Recovered/Resolved]

NARRATIVE: CASE EVENT DATE: 20240801
